FAERS Safety Report 20090554 (Version 1)
Quarter: 2021Q4

REPORT INFORMATION
  Report Type: Spontaneous
  Country: US (occurrence: None)
  Receive Date: 20211118
  Receipt Date: 20211118
  Transmission Date: 20220303
  Serious: No
  Sender: FDA-Public Use
  Company Number: None

PATIENT
  Age: 25 Year
  Sex: Female
  Weight: 60.75 kg

DRUGS (4)
  1. SULFAMETHOXAZOLE\TRIAMTERENE [Suspect]
     Active Substance: SULFAMETHOXAZOLE\TRIAMTERENE
     Indication: Ear infection
     Dosage: FREQUENCY : EVERY 12 HOURS;?
     Route: 048
     Dates: start: 20211027, end: 20211103
  2. DROPSPIRENONE/ETHINYL ESTRADIOL [Concomitant]
  3. CLARITIN [Concomitant]
     Active Substance: LORATADINE
  4. VITAMIN D [Concomitant]
     Active Substance: VITAMIN D NOS

REACTIONS (8)
  - Emotional distress [None]
  - Anxiety [None]
  - Depression [None]
  - Panic attack [None]
  - Crying [None]
  - Delusion [None]
  - Tachyphrenia [None]
  - Fear [None]

NARRATIVE: CASE EVENT DATE: 20211031
